FAERS Safety Report 24197364 (Version 2)
Quarter: 2024Q3

REPORT INFORMATION
  Report Type: Spontaneous
  Country: US (occurrence: US)
  Receive Date: 20240810
  Receipt Date: 20240925
  Transmission Date: 20241017
  Serious: Yes (Other)
  Sender: SHIONOGI
  Company Number: None

PATIENT
  Age: 75 Year
  Sex: Female

DRUGS (21)
  1. CEFIDEROCOL [Suspect]
     Active Substance: CEFIDEROCOL
     Indication: Acinetobacter infection
     Dosage: 2000 MG, 8 HOUR
     Route: 042
     Dates: start: 20220926, end: 20221107
  2. CEFIDEROCOL [Suspect]
     Active Substance: CEFIDEROCOL
     Indication: Drug resistance
  3. CEFIDEROCOL [Suspect]
     Active Substance: CEFIDEROCOL
     Indication: Neurological infection
  4. CEFIDEROCOL [Suspect]
     Active Substance: CEFIDEROCOL
     Indication: Extradural abscess
  5. CEFIDEROCOL [Suspect]
     Active Substance: CEFIDEROCOL
     Indication: Meningitis
  6. COLISTIN [Suspect]
     Active Substance: COLISTIN
     Indication: Acinetobacter bacteraemia
     Dosage: UNK
     Route: 065
  7. COLISTIN [Suspect]
     Active Substance: COLISTIN
     Indication: Bacterial infection
  8. COLISTIN [Suspect]
     Active Substance: COLISTIN
     Indication: Multiple-drug resistance
  9. POLYMYXIN [Suspect]
     Active Substance: POLYMYXIN
     Indication: Acinetobacter infection
     Dosage: UNK
     Route: 065
  10. POLYMYXIN [Suspect]
     Active Substance: POLYMYXIN
     Indication: Drug resistance
  11. MINOCYCLINE [Suspect]
     Active Substance: MINOCYCLINE HYDROCHLORIDE
     Indication: Acinetobacter infection
     Dosage: UNK
     Route: 065
  12. MINOCYCLINE [Suspect]
     Active Substance: MINOCYCLINE HYDROCHLORIDE
     Indication: Drug resistance
  13. MINOCYCLINE [Suspect]
     Active Substance: MINOCYCLINE HYDROCHLORIDE
     Indication: Extradural abscess
  14. MINOCYCLINE [Suspect]
     Active Substance: MINOCYCLINE HYDROCHLORIDE
     Indication: Meningitis
  15. Sulbactam/durlobactam [Concomitant]
     Indication: Acinetobacter infection
     Dosage: 2 G, 6 HOUR
     Route: 042
  16. Sulbactam/durlobactam [Concomitant]
     Indication: Drug resistance
  17. Sulbactam/durlobactam [Concomitant]
     Indication: Extradural abscess
  18. Sulbactam/durlobactam [Concomitant]
     Indication: Meningitis
  19. VANCOMYCIN [Concomitant]
     Active Substance: VANCOMYCIN
     Indication: Evidence based treatment
     Dosage: UNK
     Route: 065
  20. AVIBACTAM SODIUM\CEFTAZIDIME [Concomitant]
     Active Substance: AVIBACTAM SODIUM\CEFTAZIDIME
     Indication: Evidence based treatment
     Dosage: UNK
     Route: 065
  21. AZTREONAM [Concomitant]
     Active Substance: AZTREONAM
     Indication: Evidence based treatment
     Dosage: UNK
     Route: 065

REACTIONS (8)
  - Drug ineffective [Unknown]
  - Delirium [Recovered/Resolved]
  - Condition aggravated [Unknown]
  - Leukocytosis [Recovered/Resolved]
  - Hepatic enzyme increased [Recovered/Resolved]
  - Blood alkaline phosphatase increased [Recovered/Resolved]
  - Aspartate aminotransferase increased [Recovered/Resolved]
  - Alanine aminotransferase increased [Recovered/Resolved]

NARRATIVE: CASE EVENT DATE: 20220101
